FAERS Safety Report 6919809-5 (Version None)
Quarter: 2010Q3

REPORT INFORMATION
  Report Type: 
  Country: None (occurrence: None)
  Receive Date: 20100810
  Receipt Date: 20100810
  Transmission Date: 20110219
  Serious: No
  Sender: FDA-Public Use
  Company Number: None

PATIENT
  Age: 54 Year
  Sex: Female
  Weight: 68.0396 kg

DRUGS (1)
  1. LEVAQUIN [Suspect]
     Indication: UPPER RESPIRATORY TRACT INFECTION
     Dates: start: 20090827, end: 20090910

REACTIONS (5)
  - BURSITIS [None]
  - LUNG NEOPLASM [None]
  - NERVE INJURY [None]
  - PRODUCT QUALITY ISSUE [None]
  - TENDONITIS [None]
